FAERS Safety Report 6904809-1 (Version None)
Quarter: 2010Q3

REPORT INFORMATION
  Report Type: 
  Country: None (occurrence: None)
  Receive Date: 20100804
  Receipt Date: 20090713
  Transmission Date: 20110219
  Serious: No
  Sender: FDA-Public Use
  Company Number: US-PFIZER INC-2009218041

PATIENT
  Sex: Male

DRUGS (2)
  1. LYRICA [Suspect]
     Indication: HERPES ZOSTER
     Dosage: 100 MG, 3X/DAY
  2. LYRICA [Suspect]
     Indication: POST HERPETIC NEURALGIA

REACTIONS (1)
  - DRUG INEFFECTIVE [None]
